FAERS Safety Report 8984207 (Version 1)
Quarter: 2012Q4

REPORT INFORMATION
  Report Type: Spontaneous
  Country: FR (occurrence: None)
  Receive Date: 20121214
  Receipt Date: 20121214
  Transmission Date: 20130627
  Serious: Yes (Other)
  Sender: FDA-Public Use
  Company Number: DSA_61318_2012

PATIENT

DRUGS (3)
  1. FLUOROURACIL [Suspect]
     Indication: NEUROENDOCRINE CARCINOMA
  2. FOLINIC ACID [Suspect]
     Indication: NEUROENDOCRINE CARCINOMA
  3. IRINOTECAN (IRINOTECAN) [Suspect]
     Indication: NEUROENDOCRINE CARCINOMA

REACTIONS (2)
  - Neutropenia [None]
  - Toxicity to various agents [None]
